FAERS Safety Report 11930115 (Version 2)
Quarter: 2016Q1

REPORT INFORMATION
  Report Type: Spontaneous
  Country: US (occurrence: US)
  Receive Date: 20160120
  Receipt Date: 20160202
  Transmission Date: 20160526
  Serious: Yes (Hospitalization)
  Sender: FDA-Public Use
  Company Number: US-SUNOVION-2016SUN000087

PATIENT
  Age: 24 Year
  Sex: Female

DRUGS (32)
  1. CLOZARIL [Suspect]
     Active Substance: CLOZAPINE
     Dosage: 200 MG NIGHT, 50 MG MORNING
     Dates: start: 200510
  2. ZOLOFT [Concomitant]
     Active Substance: SERTRALINE HYDROCHLORIDE
     Dosage: UNK
  3. SERTRALINE [Concomitant]
     Active Substance: SERTRALINE HYDROCHLORIDE
     Dosage: 50 MG, TID
  4. MELATONIN [Concomitant]
     Active Substance: MELATONIN
  5. LATUDA [Suspect]
     Active Substance: LURASIDONE HYDROCHLORIDE
     Dosage: 80 MG, UNK
     Route: 048
  6. LATUDA [Suspect]
     Active Substance: LURASIDONE HYDROCHLORIDE
     Dosage: 120 MG, UNK
     Route: 048
  7. DEPAKOTE [Concomitant]
     Active Substance: DIVALPROEX SODIUM
     Dosage: 500 MG, QD
     Dates: start: 20151116
  8. RISPERDAL [Concomitant]
     Active Substance: RISPERIDONE
     Dosage: 4 MG, UNK
  9. TRAZODONE [Concomitant]
     Active Substance: TRAZODONE HYDROCHLORIDE
     Dosage: 150 MG, UNK
  10. OLANZAPINE. [Concomitant]
     Active Substance: OLANZAPINE
     Dosage: 5 MG, UNK
  11. SEROQUEL [Concomitant]
     Active Substance: QUETIAPINE FUMARATE
     Dosage: 50 MG, UNK
  12. LATUDA [Suspect]
     Active Substance: LURASIDONE HYDROCHLORIDE
     Indication: SCHIZOPHRENIA
     Dosage: UNK
     Route: 048
     Dates: start: 201503
  13. CLOZARIL [Suspect]
     Active Substance: CLOZAPINE
     Dosage: UNK
  14. DEPAKOTE [Concomitant]
     Active Substance: DIVALPROEX SODIUM
     Dosage: 500 MG, BID
  15. RISPERDAL [Concomitant]
     Active Substance: RISPERIDONE
     Dosage: UNK
  16. TRAZODONE [Concomitant]
     Active Substance: TRAZODONE HYDROCHLORIDE
     Dosage: 150 MG, HS
  17. TRAZODONE [Concomitant]
     Active Substance: TRAZODONE HYDROCHLORIDE
     Dosage: UNK, AS NECESSARY
  18. ZOLOFT [Concomitant]
     Active Substance: SERTRALINE HYDROCHLORIDE
     Dosage: 50 MG, UNK
  19. LATUDA [Suspect]
     Active Substance: LURASIDONE HYDROCHLORIDE
     Dosage: 40 MG, UNK
     Route: 048
  20. TRAZODONE [Concomitant]
     Active Substance: TRAZODONE HYDROCHLORIDE
     Dosage: 100 MG, UNK
  21. SEROQUEL [Concomitant]
     Active Substance: QUETIAPINE FUMARATE
     Dosage: 100 MG, UNK
  22. OMEGA 3 [Concomitant]
     Active Substance: OMEGA-3 FATTY ACIDS
  23. MULTIVITAMINS [Concomitant]
     Active Substance: VITAMINS
  24. LATUDA [Suspect]
     Active Substance: LURASIDONE HYDROCHLORIDE
     Dosage: 120 MG, UNK
  25. RISPERDAL [Concomitant]
     Active Substance: RISPERIDONE
     Dosage: UNK
  26. RISPERDAL [Concomitant]
     Active Substance: RISPERIDONE
     Dosage: 8 MG, UNK
  27. SEROQUEL [Concomitant]
     Active Substance: QUETIAPINE FUMARATE
     Dosage: 150 MG, UNK
  28. LATUDA [Suspect]
     Active Substance: LURASIDONE HYDROCHLORIDE
     Dosage: UNK
     Route: 048
  29. RISPERDAL [Concomitant]
     Active Substance: RISPERIDONE
     Dosage: 1 MG, BID
  30. RISPERDAL [Concomitant]
     Active Substance: RISPERIDONE
     Dosage: 4 MG, BID
  31. LITHIUM. [Concomitant]
     Active Substance: LITHIUM
     Dosage: 300 MG, UNK
  32. AMBIEN [Concomitant]
     Active Substance: ZOLPIDEM TARTRATE
     Dosage: 5 MG, UNK

REACTIONS (27)
  - Irritability [Unknown]
  - Decreased appetite [Unknown]
  - Hallucination [Not Recovered/Not Resolved]
  - Musculoskeletal stiffness [Unknown]
  - Decreased eye contact [Unknown]
  - Balance disorder [Unknown]
  - Anger [Not Recovered/Not Resolved]
  - Crying [Unknown]
  - Gait disturbance [Unknown]
  - Dyskinesia [Unknown]
  - Asthenia [Unknown]
  - Flat affect [Unknown]
  - Sleep disorder [Unknown]
  - Somnolence [Unknown]
  - Drug withdrawal syndrome [Unknown]
  - Oedema [Unknown]
  - Sexually inappropriate behaviour [Unknown]
  - Weight increased [Unknown]
  - Increased appetite [Unknown]
  - Soliloquy [Unknown]
  - Oedema peripheral [Unknown]
  - Euphoric mood [Unknown]
  - Screaming [Unknown]
  - Restlessness [Unknown]
  - Tremor [Unknown]
  - Anxiety [Unknown]
  - Agitation [Unknown]

NARRATIVE: CASE EVENT DATE: 201506
